FAERS Safety Report 5782441-3 (Version None)
Quarter: 2008Q2

REPORT INFORMATION
  Report Type: 
  Country: None (occurrence: None)
  Receive Date: 20080623
  Receipt Date: 20080609
  Transmission Date: 20081010
  Serious: Yes (Other)
  Sender: FDA-Public Use
  Company Number: PHHY2008CH10191

PATIENT
  Sex: Female

DRUGS (1)
  1. RITALIN [Suspect]
     Indication: ATTENTION DEFICIT/HYPERACTIVITY DISORDER
     Dosage: 20 MG PER DAY
     Dates: start: 20080411

REACTIONS (6)
  - AGITATION [None]
  - DELIRIUM [None]
  - DYSKINESIA [None]
  - NYSTAGMUS [None]
  - PARAESTHESIA [None]
  - SPEECH DISORDER [None]
